FAERS Safety Report 24059332 (Version 2)
Quarter: 2024Q4

REPORT INFORMATION
  Report Type: Spontaneous
  Country: US (occurrence: US)
  Receive Date: 20240708
  Receipt Date: 20241013
  Transmission Date: 20250114
  Serious: Yes (Hospitalization)
  Sender: BRISTOL MYERS SQUIBB
  Company Number: Athena-United States-04291594

PATIENT
  Age: 75 Year
  Sex: Male

DRUGS (1)
  1. ORENCIA [Suspect]
     Active Substance: ABATACEPT
     Indication: Product used for unknown indication
     Dosage: STORE IN REFRIGERATOR IMMEDIATELY
     Route: 058

REACTIONS (1)
  - Hospitalisation [Unknown]
